FAERS Safety Report 8230747-0 (Version None)
Quarter: 2012Q1

REPORT INFORMATION
  Report Type: 
  Country: None (occurrence: None)
  Receive Date: 20120323
  Receipt Date: 20120313
  Transmission Date: 20120608
  Serious: Yes (Other)
  Sender: FDA-Public Use
  Company Number: DE-JNJFOC-20120308297

PATIENT
  Sex: Male
  Weight: 76 kg

DRUGS (1)
  1. XEPLION [Suspect]
     Indication: PRODUCT USED FOR UNKNOWN INDICATION
     Route: 030
     Dates: end: 20110101

REACTIONS (3)
  - GASTROINTESTINAL DISORDER [None]
  - PERFORMANCE STATUS DECREASED [None]
  - RESPIRATORY DISORDER [None]
